FAERS Safety Report 5812372-1 (Version None)
Quarter: 2008Q3

REPORT INFORMATION
  Report Type: 
  Country: None (occurrence: None)
  Receive Date: 20080716
  Receipt Date: 20080704
  Transmission Date: 20090109
  Serious: Yes (Other)
  Sender: FDA-Public Use
  Company Number: CN-PFIZER INC-2008054753

PATIENT
  Sex: Male

DRUGS (1)
  1. SULPERAZON [Suspect]
     Indication: LUNG INFECTION
     Route: 042
     Dates: start: 20080627, end: 20080630

REACTIONS (1)
  - HAEMATURIA [None]
